FAERS Safety Report 7118565-8 (Version None)
Quarter: 2010Q4

REPORT INFORMATION
  Report Type: 
  Country: None (occurrence: None)
  Receive Date: 20101123
  Receipt Date: 20101116
  Transmission Date: 20110411
  Serious: Yes (Other)
  Sender: FDA-Public Use
  Company Number: US-BAYER-201018749BCC

PATIENT
  Age: 21 Year
  Sex: Female
  Weight: 63 kg

DRUGS (1)
  1. CAMPHO PHENIQUE COLD SORE GEL WITH DRYING ACTION [Suspect]
     Indication: ORAL HERPES
     Route: 061
     Dates: start: 20100701, end: 20100701

REACTIONS (5)
  - APPLICATION SITE DISCOLOURATION [None]
  - APPLICATION SITE EXFOLIATION [None]
  - DRY SKIN [None]
  - PRURITUS [None]
  - SKIN BURNING SENSATION [None]
